FAERS Safety Report 7468484-2 (Version None)
Quarter: 2011Q2

REPORT INFORMATION
  Report Type: 
  Country: None (occurrence: None)
  Receive Date: 20110509
  Receipt Date: 20110503
  Transmission Date: 20111010
  Serious: Yes (Death, Other)
  Sender: FDA-Public Use
  Company Number: PH-MERCK-1105USA00928

PATIENT
  Age: 73 Year
  Sex: Female

DRUGS (1)
  1. FOSAMAX [Suspect]
     Route: 048
     Dates: start: 20010101

REACTIONS (2)
  - MYOCARDIAL INFARCTION [None]
  - FEMUR FRACTURE [None]
